FAERS Safety Report 5512224-0 (Version None)
Quarter: 2007Q4

REPORT INFORMATION
  Report Type: 
  Country: None (occurrence: None)
  Receive Date: 20071112
  Receipt Date: 20071104
  Transmission Date: 20080405
  Serious: Yes (Other)
  Sender: FDA-Public Use
  Company Number: PHBS2007BR18446

PATIENT
  Sex: Female

DRUGS (1)
  1. ELIDEL [Suspect]

REACTIONS (2)
  - ARTHROPOD STING [None]
  - OEDEMA PERIPHERAL [None]
